FAERS Safety Report 15634535 (Version 1)
Quarter: 2018Q4

REPORT INFORMATION
  Report Type: Spontaneous
  Country: US (occurrence: US)
  Receive Date: 20181119
  Receipt Date: 20181119
  Transmission Date: 20190205
  Serious: Yes (Other)
  Sender: FDA-Public Use
  Company Number: None

PATIENT
  Age: 52 Year
  Sex: Female
  Weight: 49.5 kg

DRUGS (1)
  1. COMPOUND W [Suspect]
     Active Substance: SALICYLIC ACID
     Indication: SKIN PAPILLOMA
     Route: 061
     Dates: start: 20180708, end: 20180712

REACTIONS (1)
  - Application site discolouration [None]

NARRATIVE: CASE EVENT DATE: 20180708
